FAERS Safety Report 11010025 (Version 1)
Quarter: 2015Q2

REPORT INFORMATION
  Report Type: Report from Study
  Country: US (occurrence: US)
  Receive Date: 20150410
  Receipt Date: 20150410
  Transmission Date: 20150821
  Serious: Yes (Death, Hospitalization)
  Sender: FDA-Public Use
  Company Number: US-SA-2015SA045326

PATIENT
  Age: 64 Year
  Sex: Female
  Weight: 59.6 kg

DRUGS (5)
  1. OXALIPLATIN. [Suspect]
     Active Substance: OXALIPLATIN
     Indication: PANCREATIC CARCINOMA METASTATIC
     Dosage: FREQUENCY: DAYS 1 AND 15 EVERY 28 DAYS
     Route: 042
     Dates: start: 20150224, end: 20150224
  2. FLUOROURACIL. [Suspect]
     Active Substance: FLUOROURACIL
     Indication: PANCREATIC CARCINOMA METASTATIC
     Dosage: FREQUENCY: DAYS 1 AND 15 EVERY 28 DAYS?ROUTE: IV PUSH
     Dates: start: 20150224, end: 20150224
  3. INVESTIGATIONAL DRUG [Suspect]
     Active Substance: INVESTIGATIONAL PRODUCT
     Indication: PANCREATIC CARCINOMA METASTATIC
     Dosage: FORM: LIQUID
     Route: 042
     Dates: start: 20150223
  4. LEUCOVORIN [Suspect]
     Active Substance: LEUCOVORIN
     Indication: PANCREATIC CARCINOMA METASTATIC
     Dosage: FREQUENCY: DAYS 1 AND 15 EVERY 28 DAYS
     Route: 042
     Dates: start: 20150224, end: 20150224
  5. FLUOROURACIL. [Suspect]
     Active Substance: FLUOROURACIL
     Indication: PANCREATIC CARCINOMA METASTATIC
     Dosage: FREQUENCY: DAYS 1 AND 15 EVERY 28 DAYS
     Route: 042
     Dates: start: 20150224, end: 20150224

REACTIONS (4)
  - White blood cell count decreased [Fatal]
  - Platelet count decreased [Fatal]
  - Mental status changes [Fatal]
  - Colitis [Fatal]

NARRATIVE: CASE EVENT DATE: 20150301
